FAERS Safety Report 4939789-1 (Version None)
Quarter: 2006Q1

REPORT INFORMATION
  Report Type: 
  Country: None (occurrence: None)
  Receive Date: 20060310
  Receipt Date: 20050825
  Transmission Date: 20060701
  Serious: Yes (Hospitalization)
  Sender: FDA-Public Use
  Company Number: US-MERCK-0508USA04334

PATIENT
  Age: 57 Year
  Sex: Male
  Weight: 100 kg

DRUGS (2)
  1. VIOXX [Suspect]
     Indication: ARTHRALGIA
     Route: 048
     Dates: start: 19991201, end: 20010601
  2. ACETAMINOPHEN [Concomitant]
     Route: 065

REACTIONS (10)
  - ANXIETY [None]
  - ARTHROPATHY [None]
  - ATRIAL FIBRILLATION [None]
  - CARDIOVASCULAR DISORDER [None]
  - DEPRESSION [None]
  - EMOTIONAL DISORDER [None]
  - GASTROINTESTINAL DISORDER [None]
  - HIP ARTHROPLASTY [None]
  - MENTAL DISORDER [None]
  - THROMBOSIS [None]
